FAERS Safety Report 5158592-3 (Version None)
Quarter: 2006Q4

REPORT INFORMATION
  Report Type: 
  Country: None (occurrence: None)
  Receive Date: 20061128
  Receipt Date: 20061116
  Transmission Date: 20070319
  Serious: Yes (Hospitalization, Other)
  Sender: FDA-Public Use
  Company Number: US-ELI_LILLY_AND_COMPANY-US200611003347

PATIENT
  Sex: Female

DRUGS (2)
  1. PROZAC [Suspect]
     Indication: DEPRESSION
  2. TEGRETOL [Concomitant]

REACTIONS (7)
  - DRUG HYPERSENSITIVITY [None]
  - HEPATIC CIRRHOSIS [None]
  - HEPATIC FAILURE [None]
  - HEPATITIS [None]
  - JAUNDICE [None]
  - LOSS OF CONSCIOUSNESS [None]
  - VOMITING [None]
